FAERS Safety Report 6673567-0 (Version None)
Quarter: 2010Q2

REPORT INFORMATION
  Report Type: 
  Country: None (occurrence: None)
  Receive Date: 20100408
  Receipt Date: 20100330
  Transmission Date: 20101027
  Serious: Yes (Hospitalization)
  Sender: FDA-Public Use
  Company Number: CA-PFIZER INC-2009286932

PATIENT
  Age: 63 Year
  Sex: Male
  Weight: 88 kg

DRUGS (9)
  1. CISPLATIN [Suspect]
     Indication: OESOPHAGEAL CARCINOMA
     Dosage: 60 MG, EVERY 3 WEEKS (DAY 1 AND 8)
     Route: 042
     Dates: start: 20090914, end: 20091013
  2. IRINOTECAN HCL [Suspect]
     Indication: OESOPHAGEAL CARCINOMA
     Dosage: 100 MG, EVERY 3 WEEKS (DAY 1 AND 8)
     Route: 042
     Dates: start: 20090914, end: 20091013
  3. TOBRAMYCIN SULFATE [Suspect]
     Dosage: 380 MG, 1X/DAY
     Route: 042
     Dates: start: 20091022, end: 20091023
  4. LOSARTAN POTASSIUM [Concomitant]
     Dosage: UNK
     Route: 048
  5. ROSUVASTATIN CALCIUM [Concomitant]
     Dosage: UNK
     Route: 048
  6. AMLODIPINE BESILATE [Concomitant]
     Dosage: UNK
     Route: 048
  7. HYDROCHLOROTHIAZIDE [Concomitant]
     Dosage: UNK
     Route: 048
  8. CLOPIDOGREL BISULFATE [Concomitant]
     Dosage: UNK
     Route: 048
  9. FLUNISOLIDE [Concomitant]
     Dosage: UNK
     Route: 048

REACTIONS (3)
  - BLOOD CREATININE INCREASED [None]
  - FEBRILE NEUTROPENIA [None]
  - THROMBOCYTOPENIA [None]
